FAERS Safety Report 24944237 (Version 1)
Quarter: 2025Q1

REPORT INFORMATION
  Report Type: Report from Study
  Country: CA (occurrence: CA)
  Receive Date: 20250207
  Receipt Date: 20250207
  Transmission Date: 20250409
  Serious: Yes (Hospitalization)
  Sender: ABBVIE
  Company Number: CA-ABBVIE-6120669

PATIENT
  Age: 23 Year
  Sex: Female

DRUGS (1)
  1. RINVOQ [Suspect]
     Active Substance: UPADACITINIB
     Indication: Crohn^s disease
     Route: 048
     Dates: start: 20240822

REACTIONS (11)
  - Diarrhoea [Unknown]
  - Abdominal pain lower [Unknown]
  - Crohn^s disease [Unknown]
  - Enteritis [Unknown]
  - Ileal stenosis [Unknown]
  - Pelvic fluid collection [Unknown]
  - Oesophageal ulcer [Unknown]
  - Oesophagitis [Unknown]
  - Flank pain [Unknown]
  - Gastrointestinal tract mucosal discolouration [Unknown]
  - Abdominal pain upper [Unknown]

NARRATIVE: CASE EVENT DATE: 20240922
